FAERS Safety Report 21053768 (Version 1)
Quarter: 2022Q3

REPORT INFORMATION
  Report Type: Spontaneous
  Country: US (occurrence: None)
  Receive Date: 20220707
  Receipt Date: 20220707
  Transmission Date: 20221026
  Serious: Yes (Death)
  Sender: FDA-Public Use
  Company Number: None

PATIENT
  Age: 28 Year
  Sex: Male

DRUGS (12)
  1. POSACONAZOLE [Suspect]
     Active Substance: POSACONAZOLE
     Indication: Antifungal prophylaxis
     Dosage: FREQUENCY : DAILY;?
     Route: 048
     Dates: start: 20220622, end: 20220706
  2. TACROLIMUS [Concomitant]
     Active Substance: TACROLIMUS
  3. AZITHROMYCIN [Concomitant]
     Active Substance: AZITHROMYCIN
  4. ELIQUIS [Concomitant]
     Active Substance: APIXABAN
  5. LANSOPRAZOLE [Concomitant]
     Active Substance: LANSOPRAZOLE
  6. LEVOTHYROXINE [Concomitant]
     Active Substance: LEVOTHYROXINE
  7. MIRTAZAPINE [Concomitant]
     Active Substance: MIRTAZAPINE
  8. MONTELUKAST [Concomitant]
     Active Substance: MONTELUKAST SODIUM
  9. MYCOPHENOLIC ACID [Concomitant]
     Active Substance: MYCOPHENOLIC ACID
  10. OXCARBAZEPINE [Concomitant]
     Active Substance: OXCARBAZEPINE
  11. SERTRALINE [Concomitant]
     Active Substance: SERTRALINE HYDROCHLORIDE
  12. VALGANCICLOVIR [Concomitant]
     Active Substance: VALGANCICLOVIR

REACTIONS (1)
  - Death [None]

NARRATIVE: CASE EVENT DATE: 20220706
